FAERS Safety Report 6920507-2 (Version None)
Quarter: 2010Q3

REPORT INFORMATION
  Report Type: 
  Country: None (occurrence: None)
  Receive Date: 20100812
  Receipt Date: 20100804
  Transmission Date: 20110219
  Serious: No
  Sender: FDA-Public Use
  Company Number: US-BIOGENIDEC-2010BI027151

PATIENT
  Age: 59 Year
  Sex: Female

DRUGS (1)
  1. TYSABRI [Suspect]
     Indication: MULTIPLE SCLEROSIS
     Route: 042
     Dates: start: 20090928

REACTIONS (7)
  - ALOPECIA [None]
  - COUGH [None]
  - LACRIMATION INCREASED [None]
  - SECRETION DISCHARGE [None]
  - SINUSITIS [None]
  - SNEEZING [None]
  - THROAT IRRITATION [None]
